FAERS Safety Report 17992798 (Version 1)
Quarter: 2020Q3

REPORT INFORMATION
  Report Type: Spontaneous
  Country: RU (occurrence: RU)
  Receive Date: 20200708
  Receipt Date: 20200708
  Transmission Date: 20201103
  Serious: Yes (Other)
  Sender: FDA-Public Use
  Company Number: RU-ADVANZ PHARMA-202005006833

PATIENT

DRUGS (31)
  1. HYDROXYCHLOROQUINE SULFATE (AUTHORIZED GENERIC),PLAQUENIL [Suspect]
     Active Substance: HYDROXYCHLOROQUINE SULFATE
     Dosage: 1 DOSAGE FORM, BID
     Route: 064
     Dates: start: 20190820, end: 20191023
  2. PREDNISONE. [Suspect]
     Active Substance: PREDNISONE
     Dosage: 8 DOSAGE FORM, QD (4 TABLETS IN THE MORNING, 3 TABLETS AT NOON, 1 TABLET  IN THE EVENING)
     Route: 064
     Dates: start: 20190820, end: 20191023
  3. METHYLPREDNISOLONE. [Suspect]
     Active Substance: METHYLPREDNISOLONE
     Indication: SYSTEMIC LUPUS ERYTHEMATOSUS
     Dosage: SODIUM CHLORIDE SOLUTION 0.9% ? 100.0 IV WITHIN 30 MIN
     Route: 064
  4. NIFEDIPINE. [Suspect]
     Active Substance: NIFEDIPINE
     Dosage: 90 MG, QD, (60 MG IN THE MORNING, 30MG IN THE EVENING)
     Route: 064
     Dates: start: 20190917, end: 20191023
  5. OMEPRAZOLE. [Suspect]
     Active Substance: OMEPRAZOLE
     Dosage: 1 DOSAGE FORM, BID
     Route: 064
     Dates: start: 20190820, end: 20191023
  6. LEVOTHYROXINE SODIUM. [Suspect]
     Active Substance: LEVOTHYROXINE SODIUM
     Dosage: UNK
     Route: 064
  7. FOSFOMYCIN [Suspect]
     Active Substance: FOSFOMYCIN
     Indication: PRODUCT USED FOR UNKNOWN INDICATION
     Dosage: 3 G, QD (HS)
     Route: 064
     Dates: start: 20190919, end: 20191023
  8. FOSFOMYCIN [Suspect]
     Active Substance: FOSFOMYCIN
     Dosage: 3 G, WEEKLY (ON FRIDAY)
     Route: 064
     Dates: start: 20191009, end: 20191023
  9. METHYLDOPA. [Suspect]
     Active Substance: METHYLDOPA
     Dosage: 0.5 DOSAGE FORM, TID
     Route: 064
     Dates: start: 20190830, end: 20190903
  10. CEFEPIME HYDROCHLORIDE. [Suspect]
     Active Substance: CEFEPIME HYDROCHLORIDE
     Indication: PRODUCT USED FOR UNKNOWN INDICATION
     Dosage: UNK
     Route: 064
     Dates: start: 20190923, end: 20191001
  11. METHYLDOPA. [Suspect]
     Active Substance: METHYLDOPA
     Indication: PRODUCT USED FOR UNKNOWN INDICATION
     Dosage: 0.5 DOSAGE FORM, QD
     Route: 064
     Dates: start: 20190827, end: 20190830
  12. DIPYRIDAMOLE. [Suspect]
     Active Substance: DIPYRIDAMOLE
     Dosage: 75 MG, BID
     Route: 064
     Dates: start: 20191011, end: 20191123
  13. AZATHIOPRINE. [Suspect]
     Active Substance: AZATHIOPRINE
     Indication: PRODUCT USED FOR UNKNOWN INDICATION
     Dosage: 50 MG, QD, IN THE MORNING
     Route: 064
     Dates: start: 20191015, end: 20191021
  14. AZATHIOPRINE. [Suspect]
     Active Substance: AZATHIOPRINE
     Dosage: 50 MG, BID
     Route: 064
     Dates: start: 20191021, end: 20191023
  15. METHYLPREDNISOLONE. [Suspect]
     Active Substance: METHYLPREDNISOLONE
     Dosage: SODIUM CHLORIDE SOLUTION 0.9% ? 100.0 IV DRI PN MONDAY AND THURSDAY
     Route: 064
  16. NIFEDIPINE. [Suspect]
     Active Substance: NIFEDIPINE
     Dosage: 30 MG, QD
     Route: 064
     Dates: start: 20190906, end: 20190911
  17. METHYLDOPA. [Suspect]
     Active Substance: METHYLDOPA
     Dosage: 1.5 DOSAGE FORM, QD
     Route: 064
     Dates: start: 20191009, end: 20191023
  18. PROGESTERONE. [Suspect]
     Active Substance: PROGESTERONE
     Indication: ABORTION INDUCED
     Dosage: 400 MG, QD, FROM 14 WEEKS
     Route: 064
  19. SUPRASTIN [Suspect]
     Active Substance: CHLOROPYRAMINE HYDROCHLORIDE
     Dosage: 1 DOSAGE FORM, BID
     Route: 064
     Dates: start: 20190905, end: 20191023
  20. METHYLDOPA. [Suspect]
     Active Substance: METHYLDOPA
     Dosage: 1.5 DOSAGE FORM, QD
     Route: 064
     Dates: start: 20191011, end: 20191023
  21. CLEXANE [Suspect]
     Active Substance: ENOXAPARIN SODIUM
     Dosage: UNK UNK, BID (0.4)
     Route: 064
     Dates: start: 20190916, end: 20190926
  22. METHYLPREDNISOLONE. [Suspect]
     Active Substance: METHYLPREDNISOLONE
     Indication: SYSTEMIC LUPUS ERYTHEMATOSUS
     Dosage: 8 DOSAGE FORM, QD
     Route: 064
  23. NIFEDIPINE. [Suspect]
     Active Substance: NIFEDIPINE
     Indication: PRODUCT USED FOR UNKNOWN INDICATION
     Dosage: 30 MG, BID
     Route: 064
     Dates: start: 20190819, end: 20190917
  24. FERRIC HYDROXIDE POLYMALTOSE COMPLEX [Suspect]
     Active Substance: IRON POLYMALTOSE
     Dosage: 1 DOSAGE FORM, TID
     Route: 064
     Dates: start: 20190820, end: 20191023
  25. MAGNESIUM SULFATE. [Suspect]
     Active Substance: MAGNESIUM SULFATE
     Dosage: UNK
     Route: 064
  26. NIFEDIPINE. [Suspect]
     Active Substance: NIFEDIPINE
     Dosage: 30 MG, QD
     Route: 064
     Dates: start: 20190911, end: 20190915
  27. FOLIC ACID. [Suspect]
     Active Substance: FOLIC ACID
     Dosage: 1 DOSAGE FORM, TID
     Route: 064
     Dates: start: 20190820, end: 20191023
  28. CLEXANE [Suspect]
     Active Substance: ENOXAPARIN SODIUM
     Indication: EMBOLISM VENOUS
     Dosage: UNK, QD (0.4 )
     Route: 064
     Dates: start: 20190820, end: 20190915
  29. CLEXANE [Suspect]
     Active Substance: ENOXAPARIN SODIUM
     Dosage: UNK, BID (0.4)
     Route: 064
     Dates: start: 20191011, end: 20191023
  30. CEFTAROLINE FOSAMIL [Suspect]
     Active Substance: CEFTAROLINE FOSAMIL
     Dosage: 600  MG, SODIUM CHLORIDE SOLUTION 0.9% ?100.0, EVERY 12 HOURS FOR 10 DAYS IV SLOWLY  WITHIN AN HOUR
     Route: 064
  31. SUPRASTIN [Suspect]
     Active Substance: CHLOROPYRAMINE HYDROCHLORIDE
     Indication: PRODUCT USED FOR UNKNOWN INDICATION
     Dosage: 1 DOSAGE FORM, QD (HS)
     Route: 064
     Dates: start: 20190903, end: 20190905

REACTIONS (4)
  - Placental insufficiency [Unknown]
  - Foetal growth restriction [Unknown]
  - Foetal exposure during pregnancy [Unknown]
  - Premature baby [Unknown]
